FAERS Safety Report 7301606-2 (Version None)
Quarter: 2011Q1

REPORT INFORMATION
  Report Type: 
  Country: None (occurrence: None)
  Receive Date: 20110218
  Receipt Date: 20110208
  Transmission Date: 20110831
  Serious: Yes (Other)
  Sender: FDA-Public Use
  Company Number: US-ALLERGAN-1100035US

PATIENT
  Age: 69 Year
  Sex: Female
  Weight: 88.435 kg

DRUGS (2)
  1. OZURDEX [Suspect]
     Dosage: 0.7 MG, SINGLE
     Route: 031
     Dates: start: 20101025, end: 20101025
  2. OZURDEX [Suspect]
     Indication: OEDEMA

REACTIONS (4)
  - INTRAOCULAR PRESSURE INCREASED [None]
  - OPTIC NERVE INJURY [None]
  - GLAUCOMA [None]
  - BLINDNESS [None]
